FAERS Safety Report 8342353-8 (Version None)
Quarter: 2012Q2

REPORT INFORMATION
  Report Type: 
  Country: None (occurrence: None)
  Receive Date: 20120508
  Receipt Date: 20120427
  Transmission Date: 20120825
  Serious: Yes (Hospitalization)
  Sender: FDA-Public Use
  Company Number: US-AMGEN-USASP2012026907

PATIENT
  Sex: Female

DRUGS (1)
  1. ENBREL [Suspect]
     Indication: RHEUMATOID ARTHRITIS
     Dosage: 50 MG, QWK
     Dates: start: 20011109, end: 20101001

REACTIONS (6)
  - ABDOMINAL HERNIA [None]
  - HYPERSENSITIVITY [None]
  - RHEUMATOID ARTHRITIS [None]
  - WOUND INFECTION STAPHYLOCOCCAL [None]
  - SKIN GRAFT [None]
  - IMPAIRED HEALING [None]
